FAERS Safety Report 4362484-7 (Version None)
Quarter: 2004Q2

REPORT INFORMATION
  Report Type: 
  Country: None (occurrence: None)
  Receive Date: 20040518
  Receipt Date: 20040503
  Transmission Date: 20050107
  Serious: Yes (Other)
  Sender: FDA-Public Use
  Company Number: 701619

PATIENT
  Sex: Male

DRUGS (1)
  1. AMEVIVE [Suspect]
     Indication: PSORIASIS
     Dosage: 15 MG QW IM
     Dates: start: 20031001, end: 20031231

REACTIONS (7)
  - BASAL CELL CARCINOMA [None]
  - ERYTHEMA [None]
  - HERPES ZOSTER [None]
  - RASH PAPULAR [None]
  - RASH SCALY [None]
  - ROSACEA [None]
  - TELANGIECTASIA [None]
